FAERS Safety Report 9989088 (Version 2)
Quarter: 2014Q1

REPORT INFORMATION
  Report Type: Report from Study
  Country: US (occurrence: US)
  Receive Date: 20140310
  Receipt Date: 20140310
  Transmission Date: 20141002
  Serious: No
  Sender: FDA-Public Use
  Company Number: US-ABBVIE-12P-163-0974661-00

PATIENT
  Sex: Male
  Weight: 108.96 kg

DRUGS (8)
  1. HUMIRA [Suspect]
     Indication: PSORIASIS
     Dates: start: 2010
  2. METOPROLOL [Concomitant]
     Indication: HYPERTENSION
     Dosage: 50 MG 1-2 DAILY
     Route: 048
  3. AMLODIPINE [Concomitant]
     Indication: HYPERTENSION
     Dosage: DAILY
     Route: 048
  4. BENAZEPRIL HCL [Concomitant]
     Indication: HYPERTENSION
     Dosage: DAILY
     Route: 048
  5. TRIAZOLAM [Concomitant]
     Indication: INSOMNIA
  6. CENTRUM SILVER [Concomitant]
     Indication: VITAMIN SUPPLEMENTATION
  7. FISH OIL [Concomitant]
     Indication: CARDIAC DISORDER
  8. ASPIRIN [Concomitant]
     Indication: CARDIAC DISORDER

REACTIONS (7)
  - Wrong technique in drug usage process [Unknown]
  - Incorrect dose administered [Unknown]
  - Injection site pain [Recovered/Resolved]
  - Injection site pain [Unknown]
  - Injection site pain [Not Recovered/Not Resolved]
  - Injection site erythema [Not Recovered/Not Resolved]
  - Injection site mass [Not Recovered/Not Resolved]
